FAERS Safety Report 4581795-3 (Version None)
Quarter: 2005Q1

REPORT INFORMATION
  Report Type: 
  Country: None (occurrence: None)
  Receive Date: 20050214
  Receipt Date: 20040304
  Transmission Date: 20050727
  Serious: No
  Sender: FDA-Public Use
  Company Number: US-GLAXOSMITHKLINE-A0501210A

PATIENT
  Age: 42 Year
  Sex: Female

DRUGS (4)
  1. LAMICTAL [Suspect]
     Indication: BIPOLAR DISORDER
     Dosage: 25MG PER DAY
     Dates: start: 20040101
  2. WELLBUTRIN [Concomitant]
     Dosage: 200MG TWICE PER DAY
     Route: 048
  3. NEURONTIN [Concomitant]
     Dosage: 600MG THREE TIMES PER DAY
     Route: 048
  4. BUSPAR [Concomitant]
     Dosage: 15MG VARIABLE DOSE
     Route: 048

REACTIONS (1)
  - RASH [None]
